FAERS Safety Report 10170313 (Version 3)
Quarter: 2014Q2

REPORT INFORMATION
  Report Type: Spontaneous
  Country: US (occurrence: US)
  Receive Date: 20140513
  Receipt Date: 20140610
  Transmission Date: 20141212
  Serious: Yes (Death, Hospitalization, Other)
  Sender: FDA-Public Use
  Company Number: US-DENDREON CORPORATION-2014PROUSA03697

PATIENT
  Age: 79 Year
  Sex: Male
  Weight: 67.57 kg

DRUGS (11)
  1. PROVENGE [Suspect]
     Indication: PROSTATE CANCER METASTATIC
     Dosage: 250 ML, SINGLE
     Route: 042
     Dates: start: 20121005, end: 20121005
  2. PROVENGE [Suspect]
     Dosage: 250 ML, SINGLE
     Route: 042
     Dates: start: 20121019, end: 20121019
  3. PROVENGE [Suspect]
     Dosage: 250 ML, SINGLE
     Route: 042
     Dates: start: 20121109, end: 20121109
  4. KETOCONAZOLE [Suspect]
     Indication: PRODUCT USED FOR UNKNOWN INDICATION
     Dosage: 200 MG, TAKE 2 TID
     Route: 048
  5. FINASTERIDE [Concomitant]
     Indication: BENIGN PROSTATIC HYPERPLASIA
     Dosage: 5 MG, UNK
     Route: 048
  6. TAMSULOSIN [Concomitant]
     Indication: BENIGN PROSTATIC HYPERPLASIA
     Dosage: 0.4 MG, UNK
     Route: 048
  7. ACETAMINOPHEN [Concomitant]
     Indication: PRODUCT USED FOR UNKNOWN INDICATION
     Dosage: 500 MG, 2 CAPSULES
     Route: 048
  8. ACETAMINOPHEN W/HYDROCODONE BITARTRATE [Concomitant]
     Indication: PAIN
     Dosage: 5MG-500 MG
     Route: 048
  9. LEUPRORELIN [Concomitant]
     Indication: PRODUCT USED FOR UNKNOWN INDICATION
     Dosage: 22.5 MG, Q 3 MONTHS
     Route: 030
  10. PREDNISONE [Concomitant]
     Indication: PRODUCT USED FOR UNKNOWN INDICATION
     Dosage: 10 MG, UNK
     Route: 048
  11. TRIAMCINOLONE ACETONIDE [Concomitant]
     Indication: PRODUCT USED FOR UNKNOWN INDICATION

REACTIONS (35)
  - Death [Fatal]
  - Deep vein thrombosis [Unknown]
  - Gastrointestinal haemorrhage [Unknown]
  - Loss of consciousness [Recovered/Resolved]
  - Hypotension [Unknown]
  - Metastases to bone [Unknown]
  - Metastases to retroperitoneum [Unknown]
  - Dizziness [Unknown]
  - Asthenia [Unknown]
  - Anaemia [Unknown]
  - Spinal column stenosis [Unknown]
  - Eye pain [Unknown]
  - Glaucoma [Unknown]
  - Joint stiffness [Unknown]
  - Vision blurred [Unknown]
  - Skeletal injury [Unknown]
  - Sinusitis [Unknown]
  - Eye disorder [Unknown]
  - Bundle branch block right [Unknown]
  - Hiatus hernia [Unknown]
  - Renal failure chronic [Unknown]
  - Skin lesion [Unknown]
  - Hypoacusis [Unknown]
  - Hydronephrosis [Unknown]
  - Adenomatous polyposis coli [Unknown]
  - Abdominal pain upper [Unknown]
  - Chills [Recovered/Resolved]
  - Productive cough [Unknown]
  - Pyrexia [Unknown]
  - Back pain [Recovered/Resolved]
  - Nausea [Recovered/Resolved]
  - Vomiting [Recovered/Resolved]
  - Fatigue [Unknown]
  - Prostatic specific antigen increased [Unknown]
  - Decreased appetite [Unknown]
